FAERS Safety Report 15833347 (Version 2)
Quarter: 2019Q1

REPORT INFORMATION
  Report Type: Spontaneous
  Country: JP (occurrence: JP)
  Receive Date: 20190116
  Receipt Date: 20190206
  Transmission Date: 20190417
  Serious: Yes (Hospitalization)
  Sender: FDA-Public Use
  Company Number: JP-PFIZER INC-2019020524

PATIENT
  Age: 69 Year
  Sex: Female

DRUGS (2)
  1. CAMPTO [Suspect]
     Active Substance: IRINOTECAN
     Indication: CERVIX CARCINOMA
     Dosage: UNK UNK, 1X/DAY (TOTAL OF 6 CYCLES)
     Route: 041
  2. MITOMYCIN. [Suspect]
     Active Substance: MITOMYCIN
     Indication: CERVIX CARCINOMA
     Dosage: UNK UNK, 1X/DAY (TOTAL OF 6 CYCLES)
     Route: 041

REACTIONS (1)
  - Stress cardiomyopathy [Recovering/Resolving]
